FAERS Safety Report 18935915 (Version 1)
Quarter: 2021Q1

REPORT INFORMATION
  Report Type: Spontaneous
  Country: US (occurrence: US)
  Receive Date: 20210224
  Receipt Date: 20210224
  Transmission Date: 20210420
  Serious: Yes (Death, Other)
  Sender: FDA-Public Use
  Company Number: US-SUN PHARMACEUTICAL INDUSTRIES LTD-2021R1-280990

PATIENT
  Age: 27 Year
  Sex: Female

DRUGS (14)
  1. CICLOSPORIN [Suspect]
     Active Substance: CYCLOSPORINE
     Dosage: 125 MILLIGRAM, BID
     Route: 048
  2. CEFTRIAXONE. [Suspect]
     Active Substance: CEFTRIAXONE
     Indication: STAPHYLOCOCCAL INFECTION
     Route: 065
  3. LABETALOL [Suspect]
     Active Substance: LABETALOL\LABETALOL HYDROCHLORIDE
     Indication: PREGNANCY
     Dosage: 400 MILLIGRAM, BID
     Route: 048
  4. METHYLPREDNISOLONE. [Suspect]
     Active Substance: METHYLPREDNISOLONE
     Indication: STAPHYLOCOCCAL INFECTION
     Dosage: 16 MILLIGRAM, DAILY
     Route: 042
  5. HYDROXYCHLOROQUINE [Suspect]
     Active Substance: HYDROXYCHLOROQUINE
     Indication: PREGNANCY
     Dosage: 200 MILLIGRAM, DAILY
     Route: 048
  6. URSODIOL. [Suspect]
     Active Substance: URSODIOL
     Indication: PREGNANCY
     Dosage: 300 MILLIGRAM, TID
     Route: 048
  7. PREDNISONE. [Suspect]
     Active Substance: PREDNISONE
     Indication: PREGNANCY
     Dosage: 20 MILLIGRAM, DAILY
     Route: 048
  8. MYCOPHENOLATE MOFETIL. [Suspect]
     Active Substance: MYCOPHENOLATE MOFETIL
     Indication: PREGNANCY
     Dosage: 3 GRAM, DAILY
     Route: 065
  9. ECULIZUMAB [Suspect]
     Active Substance: ECULIZUMAB
     Indication: ATYPICAL HAEMOLYTIC URAEMIC SYNDROME
     Route: 065
  10. FUROSEMIDE. [Suspect]
     Active Substance: FUROSEMIDE
     Indication: FLUID OVERLOAD
     Dosage: 80 MILLIGRAM, DAILY
     Route: 065
  11. ASPIRIN. [Suspect]
     Active Substance: ASPIRIN
     Indication: PREGNANCY
     Dosage: 81 MILLIGRAM, DAILY
     Route: 048
  12. CICLOSPORIN [Suspect]
     Active Substance: CYCLOSPORINE
     Indication: PREGNANCY
     Dosage: 100 MILLIGRAM, BID
     Route: 048
  13. LEVOTHYROXINE. [Suspect]
     Active Substance: LEVOTHYROXINE
     Indication: PREGNANCY
     Dosage: 150 MICROGRAM, DAILY
     Route: 048
  14. VANCOMYCIN HYDROCHLORIDE. [Suspect]
     Active Substance: VANCOMYCIN HYDROCHLORIDE
     Indication: STAPHYLOCOCCAL INFECTION
     Route: 065

REACTIONS (10)
  - Exposure during pregnancy [Unknown]
  - Drug ineffective [Unknown]
  - Premature delivery [Unknown]
  - Coagulopathy [Fatal]
  - Acute respiratory distress syndrome [Unknown]
  - Tachycardia [Unknown]
  - Tachypnoea [Unknown]
  - Thrombotic microangiopathy [Unknown]
  - Oliguria [Unknown]
  - Atypical haemolytic uraemic syndrome [Unknown]
